FAERS Safety Report 11218054 (Version 3)
Quarter: 2015Q3

REPORT INFORMATION
  Report Type: Report from Study
  Country: US (occurrence: US)
  Receive Date: 20150625
  Receipt Date: 20150723
  Transmission Date: 20151125
  Serious: Yes (Hospitalization)
  Sender: FDA-Public Use
  Company Number: US-BIOGENIDEC-2015BI085284

PATIENT
  Age: 60 Year
  Sex: Female

DRUGS (3)
  1. AVONEX [Suspect]
     Active Substance: INTERFERON BETA-1A
     Indication: MULTIPLE SCLEROSIS
     Route: 030
     Dates: start: 20150624
  2. AVONEX [Suspect]
     Active Substance: INTERFERON BETA-1A
     Indication: MULTIPLE SCLEROSIS
     Route: 030
     Dates: start: 20080502, end: 20150107
  3. AVONEX [Suspect]
     Active Substance: INTERFERON BETA-1A
     Indication: MULTIPLE SCLEROSIS
     Route: 030

REACTIONS (12)
  - Visual acuity reduced [Not Recovered/Not Resolved]
  - Multiple sclerosis [Unknown]
  - Memory impairment [Unknown]
  - Malaise [Unknown]
  - Fall [Recovered/Resolved]
  - Pneumonia [Recovered/Resolved]
  - General symptom [Unknown]
  - Influenza like illness [Recovered/Resolved]
  - Cough [Not Recovered/Not Resolved]
  - Abasia [Recovered/Resolved]
  - Balance disorder [Unknown]
  - Urinary tract infection [Recovered/Resolved]

NARRATIVE: CASE EVENT DATE: 201407
